FAERS Safety Report 25258317 (Version 1)
Quarter: 2025Q2

REPORT INFORMATION
  Report Type: Spontaneous
  Country: HU (occurrence: HU)
  Receive Date: 20250501
  Receipt Date: 20250501
  Transmission Date: 20250716
  Serious: Yes (Life-Threatening, Other)
  Sender: ROCHE
  Company Number: HU-ROCHE-10000269998

PATIENT
  Sex: Male

DRUGS (1)
  1. RITUXAN [Suspect]
     Active Substance: RITUXIMAB
     Indication: Product used for unknown indication
     Route: 065

REACTIONS (6)
  - Drug hypersensitivity [Unknown]
  - Thrombosis [Unknown]
  - Fatigue [Unknown]
  - Influenza like illness [Unknown]
  - Vomiting [Unknown]
  - Loss of consciousness [Unknown]
